FAERS Safety Report 6567297-3 (Version None)
Quarter: 2010Q1

REPORT INFORMATION
  Report Type: 
  Country: None (occurrence: None)
  Receive Date: 20100202
  Receipt Date: 20100120
  Transmission Date: 20100710
  Serious: Yes (Other)
  Sender: FDA-Public Use
  Company Number: PHHY2009CA52665

PATIENT
  Sex: Female

DRUGS (3)
  1. DIOVAN HCT [Suspect]
     Indication: HYPERTENSION
     Dosage: 1 TABLET (160/25 MG) DAILY
     Route: 048
  2. DIOVAN HCT [Suspect]
     Dosage: 1 TABLET (320/25 MG) DAILY
     Route: 048
  3. INSULIN [Concomitant]
     Indication: DIABETES MELLITUS

REACTIONS (14)
  - BLINDNESS [None]
  - BLOOD GLUCOSE FLUCTUATION [None]
  - BLOOD PRESSURE INADEQUATELY CONTROLLED [None]
  - CHEST PAIN [None]
  - COUGH [None]
  - DIABETIC RETINOPATHY [None]
  - DIZZINESS [None]
  - DYSPNOEA [None]
  - EYE LASER SURGERY [None]
  - EYE OPERATION [None]
  - NASOPHARYNGITIS [None]
  - PAIN [None]
  - RETINAL DETACHMENT [None]
  - VISUAL ACUITY REDUCED [None]
